FAERS Safety Report 9624437 (Version 2)
Quarter: 2013Q4

REPORT INFORMATION
  Report Type: Spontaneous
  Country: US (occurrence: US)
  Receive Date: 20131015
  Receipt Date: 20131017
  Transmission Date: 20140711
  Serious: Yes (Other)
  Sender: FDA-Public Use
  Company Number: US-TEVA-437620USA

PATIENT
  Sex: Male

DRUGS (3)
  1. PROAIR HFA [Suspect]
     Indication: LUNG DISORDER
     Dosage: 360 MICROGRAM DAILY; 1-2 PUFFS
     Route: 055
     Dates: start: 20131003
  2. CHERATUSSIN AC [Suspect]
     Indication: COUGH
     Dates: start: 20131003
  3. ADVAIR [Concomitant]

REACTIONS (6)
  - Hip fracture [Not Recovered/Not Resolved]
  - Dizziness [Recovered/Resolved]
  - Lung disorder [Not Recovered/Not Resolved]
  - Oxygen saturation decreased [Not Recovered/Not Resolved]
  - Arthralgia [Not Recovered/Not Resolved]
  - Mobility decreased [Not Recovered/Not Resolved]
